FAERS Safety Report 8160882-7 (Version None)
Quarter: 2012Q1

REPORT INFORMATION
  Report Type: 
  Country: None (occurrence: None)
  Receive Date: 20120223
  Receipt Date: 20120220
  Transmission Date: 20120608
  Serious: Yes (Death)
  Sender: FDA-Public Use
  Company Number: PHHY2012JP015023

PATIENT
  Age: 85 Year
  Sex: Female

DRUGS (5)
  1. CANDESARTAN CILEXETIL [Concomitant]
     Dosage: 8 MG, UNK
     Route: 048
  2. RASILEZ [Suspect]
     Indication: HYPERTENSION
     Dosage: 150 MG, QD
     Route: 048
     Dates: start: 20101217
  3. ADALAT CC [Concomitant]
     Dosage: 25 MG, UNK
     Route: 048
  4. LIPITOR [Concomitant]
     Dosage: 10 MG, UNK
     Route: 048
  5. HUMALOG [Concomitant]
     Dosage: 32 IU, UNK
     Route: 058

REACTIONS (1)
  - DEATH [None]
